FAERS Safety Report 14110523 (Version 1)
Quarter: 2017Q4

REPORT INFORMATION
  Report Type: Spontaneous
  Country: US (occurrence: None)
  Receive Date: 20171019
  Receipt Date: 20171019
  Transmission Date: 20180321
  Serious: No
  Sender: FDA-Public Use
  Company Number: None

PATIENT
  Age: 68 Year
  Sex: Female
  Weight: 86.18 kg

DRUGS (17)
  1. COD LIVER OIL [Concomitant]
     Active Substance: COD LIVER OIL
  2. ANASTROZOLE (GEN. FOR ARIMIDEX) [Suspect]
     Active Substance: ANASTROZOLE
     Indication: HORMONE SUPPRESSION THERAPY
     Dosage: 1 PILL PER DAY, MOUTH
     Route: 048
     Dates: start: 20170713, end: 20170816
  3. LORATADINE. [Concomitant]
     Active Substance: LORATADINE
  4. TAMOXIFEN [Concomitant]
     Active Substance: TAMOXIFEN
  5. ANASTROZOLE (GEN. FOR ARIMIDEX) [Suspect]
     Active Substance: ANASTROZOLE
     Indication: BREAST CANCER
     Dosage: 1 PILL PER DAY, MOUTH
     Route: 048
     Dates: start: 20170713, end: 20170816
  6. ASPIRIN. [Concomitant]
     Active Substance: ASPIRIN
  7. VITAMIN D [Concomitant]
     Active Substance: CHOLECALCIFEROL
  8. VIT B-12 [Concomitant]
  9. PROBIOTIC/ACIDOPHILUS [Concomitant]
  10. LEVOXYL [Concomitant]
     Active Substance: LEVOTHYROXINE SODIUM
  11. LISINOPRIL AND HYDROCHLOROTHIAZIDE [Concomitant]
     Active Substance: HYDROCHLOROTHIAZIDE\LISINOPRIL
  12. ORGANIC APPLE CIDER VINEGAR [Concomitant]
  13. ALEVE [Concomitant]
     Active Substance: NAPROXEN SODIUM
  14. VITAMIN C [Concomitant]
     Active Substance: ASCORBIC ACID
  15. GARLIC. [Concomitant]
     Active Substance: GARLIC
  16. CALCUIM [Concomitant]
  17. HORMONE BLOCKER [Concomitant]

REACTIONS (15)
  - Pain in jaw [None]
  - Headache [None]
  - Anxiety [None]
  - Bladder discomfort [None]
  - Arthralgia [None]
  - Feeding disorder [None]
  - Nausea [None]
  - Insomnia [None]
  - Weight decreased [None]
  - Toothache [None]
  - Abdominal pain [None]
  - Back pain [None]
  - Depression [None]
  - Crying [None]
  - Decreased appetite [None]

NARRATIVE: CASE EVENT DATE: 20170810
